FAERS Safety Report 6815303-0 (Version None)
Quarter: 2010Q3

REPORT INFORMATION
  Report Type: 
  Country: None (occurrence: None)
  Receive Date: 20100701
  Receipt Date: 20100701
  Transmission Date: 20110219
  Serious: Yes (Other)
  Sender: FDA-Public Use
  Company Number: None

PATIENT
  Sex: Male
  Weight: 95.2554 kg

DRUGS (1)
  1. GEMFIBROZIL [Suspect]
     Indication: BLOOD TRIGLYCERIDES INCREASED
     Dosage: 600 MG 2 X DAY PO
     Route: 048
     Dates: start: 20100529, end: 20100614

REACTIONS (3)
  - DIARRHOEA HAEMORRHAGIC [None]
  - MYALGIA [None]
  - TINNITUS [None]
